FAERS Safety Report 5502865-9 (Version None)
Quarter: 2007Q4

REPORT INFORMATION
  Report Type: 
  Country: None (occurrence: None)
  Receive Date: 20071031
  Receipt Date: 20071022
  Transmission Date: 20080405
  Serious: Yes (Life-Threatening, Disabling, Other)
  Sender: FDA-Public Use
  Company Number: GB-AVENTIS-200719666GDDC

PATIENT

DRUGS (1)
  1. GLYBURIDE [Suspect]

REACTIONS (30)
  - ABDOMINAL PAIN [None]
  - ACIDOSIS [None]
  - AGITATION [None]
  - BLOOD CREATINE PHOSPHOKINASE INCREASED [None]
  - BLOOD ELECTROLYTES ABNORMAL [None]
  - BRADYCARDIA [None]
  - COMA [None]
  - CONFUSIONAL STATE [None]
  - CONVULSION [None]
  - COORDINATION ABNORMAL [None]
  - DIARRHOEA [None]
  - DIZZINESS [None]
  - DYSARTHRIA [None]
  - HYPERGLYCAEMIA [None]
  - HYPERHIDROSIS [None]
  - HYPERTENSION [None]
  - HYPOGLYCAEMIA [None]
  - INTENTIONAL DRUG MISUSE [None]
  - INTENTIONAL SELF-INJURY [None]
  - MEDICATION ERROR [None]
  - NAUSEA [None]
  - OVERDOSE [None]
  - PAIN [None]
  - PYREXIA [None]
  - RENAL FAILURE [None]
  - SOMNOLENCE [None]
  - SUICIDE ATTEMPT [None]
  - SYNCOPE [None]
  - TACHYCARDIA [None]
  - VOMITING [None]
